FAERS Safety Report 7479528-6 (Version None)
Quarter: 2011Q2

REPORT INFORMATION
  Report Type: 
  Country: None (occurrence: None)
  Receive Date: 20110513
  Receipt Date: 20110510
  Transmission Date: 20111010
  Serious: Yes (Hospitalization)
  Sender: FDA-Public Use
  Company Number: NL-ABBOTT-10P-114-0686835-00

PATIENT
  Sex: Female
  Weight: 68 kg

DRUGS (4)
  1. HUMIRA [Suspect]
     Indication: FISTULA
  2. HUMIRA [Suspect]
     Indication: CROHN'S DISEASE
     Route: 058
     Dates: start: 20080401
  3. ACETAMINOPHEN W/ CODEINE [Concomitant]
     Indication: PAIN
     Dosage: 500/10MG
     Route: 048
  4. ACETAMINOPHEN W/ CODEINE [Concomitant]
     Indication: CROHN'S DISEASE

REACTIONS (4)
  - PULMONARY EMBOLISM [None]
  - INJECTION SITE RASH [None]
  - FISTULA [None]
  - THROMBOSIS [None]
